FAERS Safety Report 20566748 (Version 1)
Quarter: 2022Q1

REPORT INFORMATION
  Report Type: Spontaneous
  Country: CA (occurrence: CA)
  Receive Date: 20220308
  Receipt Date: 20220308
  Transmission Date: 20220423
  Serious: Yes (Hospitalization)
  Sender: FDA-Public Use
  Company Number: CA-TEVA-2022-CA-2013498

PATIENT
  Age: 68 Year
  Sex: Male

DRUGS (13)
  1. OXALIPLATIN [Suspect]
     Active Substance: OXALIPLATIN
     Indication: Colorectal cancer metastatic
     Dosage: SINGLE USE VIALS
     Route: 042
  2. EZETIMIBE [Concomitant]
     Active Substance: EZETIMIBE
  3. FLUCONAZOLE [Concomitant]
     Active Substance: FLUCONAZOLE
  4. HYDROMORPHONE [Concomitant]
     Active Substance: HYDROMORPHONE
  5. LEVETIRACETAM [Concomitant]
     Active Substance: LEVETIRACETAM
     Route: 065
  6. LEVOTHYROXINE [Concomitant]
     Active Substance: LEVOTHYROXINE
  7. MIDODRINE [Concomitant]
     Active Substance: MIDODRINE
  8. METFORMIN/SITAGLIPTINE [Concomitant]
  9. PANTOPRAZOLE [Concomitant]
     Active Substance: PANTOPRAZOLE
  10. RIVAROXABAN [Concomitant]
     Active Substance: RIVAROXABAN
     Route: 065
  11. ROSUVASTATIN [Concomitant]
     Active Substance: ROSUVASTATIN
     Route: 065
  12. TAMSULOSIN [Concomitant]
     Active Substance: TAMSULOSIN
  13. TOUJEO [Concomitant]
     Active Substance: INSULIN GLARGINE
     Route: 058

REACTIONS (5)
  - Foaming at mouth [Recovered/Resolved]
  - Hypotension [Recovered/Resolved]
  - Lactic acidosis [Recovered/Resolved]
  - Tachycardia [Recovered/Resolved]
  - Unresponsive to stimuli [Recovered/Resolved]
